FAERS Safety Report 25087825 (Version 3)
Quarter: 2025Q2

REPORT INFORMATION
  Report Type: Spontaneous
  Country: US (occurrence: US)
  Receive Date: 20250318
  Receipt Date: 20250604
  Transmission Date: 20250717
  Serious: No
  Sender: LUPIN
  Company Number: US-LUPIN PHARMACEUTICALS INC.-2025-01301

PATIENT
  Age: 46 Year
  Weight: 102.04 kg

DRUGS (1)
  1. ALBUTEROL SULFATE [Suspect]
     Active Substance: ALBUTEROL SULFATE
     Indication: Bronchitis

REACTIONS (4)
  - Device delivery system issue [Unknown]
  - Secretion discharge [Unknown]
  - Cough [Unknown]
  - Drug dose omission by device [Unknown]
